FAERS Safety Report 21166374 (Version 7)
Quarter: 2022Q4

REPORT INFORMATION
  Report Type: Report from Study
  Country: AR (occurrence: AR)
  Receive Date: 20220803
  Receipt Date: 20221010
  Transmission Date: 20230113
  Serious: Yes (Other)
  Sender: FDA-Public Use
  Company Number: AR-NOVARTISPH-NVSC2022AR116658

PATIENT
  Age: 47 Year
  Sex: Female

DRUGS (3)
  1. KISQALI [Suspect]
     Active Substance: RIBOCICLIB
     Indication: Breast cancer metastatic
     Dosage: 200 MG, TID
     Route: 048
     Dates: start: 20220204
  2. FULVESTRANT [Suspect]
     Active Substance: FULVESTRANT
     Indication: Breast cancer metastatic
     Dosage: 250 MG, QMO
     Route: 058
     Dates: start: 20220204
  3. ZOMETA [Suspect]
     Active Substance: ZOLEDRONIC ACID
     Indication: Breast cancer metastatic
     Dosage: 4 MG, QMO (THROUGH THE VEIN)
     Route: 042
     Dates: start: 20220204

REACTIONS (16)
  - Cell marker increased [Unknown]
  - Anxiety [Not Recovered/Not Resolved]
  - Dysphonia [Unknown]
  - Anger [Unknown]
  - Dyspnoea [Unknown]
  - COVID-19 [Unknown]
  - Throat irritation [Unknown]
  - Decreased immune responsiveness [Unknown]
  - Product dose omission in error [Unknown]
  - Headache [Unknown]
  - Nausea [Unknown]
  - Depressed mood [Unknown]
  - Incorrect dose administered [Unknown]
  - Fatigue [Unknown]
  - Muscle atrophy [Unknown]
  - Dyskinesia [Unknown]

NARRATIVE: CASE EVENT DATE: 20220709
